FAERS Safety Report 14148208 (Version 1)
Quarter: 2017Q4

REPORT INFORMATION
  Report Type: Spontaneous
  Country: US (occurrence: None)
  Receive Date: 20171031
  Receipt Date: 20171031
  Transmission Date: 20180321
  Serious: Yes (Death, Life-Threatening, Hospitalization)
  Sender: FDA-Public Use
  Company Number: None

PATIENT
  Age: 64 Year
  Sex: Male
  Weight: 58.97 kg

DRUGS (13)
  1. DOCUSATE [Concomitant]
     Active Substance: DOCUSATE
  2. FAMOTIDINE. [Concomitant]
     Active Substance: FAMOTIDINE
  3. SENNA [Concomitant]
     Active Substance: SENNA LEAF\SENNOSIDES\SENNOSIDES A AND B
  4. APAP [Concomitant]
     Active Substance: ACETAMINOPHEN
  5. SIMVASTATIN. [Concomitant]
     Active Substance: SIMVASTATIN
  6. NORCO [Concomitant]
     Active Substance: ACETAMINOPHEN\HYDROCODONE BITARTRATE
  7. METOCHLOPROPAMIDE [Concomitant]
  8. LACTULOSE. [Concomitant]
     Active Substance: LACTULOSE
  9. PEG [Concomitant]
     Active Substance: POLYETHYLENE GLYCOLS
  10. IPILUMUMAB [Suspect]
     Active Substance: IPILIMUMAB
     Indication: MALIGNANT MELANOMA
     Dates: start: 20170509, end: 20170621
  11. KETOCONAZOLE. [Concomitant]
     Active Substance: KETOCONAZOLE
  12. PANTOPRAZOLE [Concomitant]
     Active Substance: PANTOPRAZOLE
  13. IPILIMUMAB [Suspect]
     Active Substance: IPILIMUMAB
     Indication: MALIGNANT MELANOMA
     Dosage: 670MG EVERY 3 WEEKS IV
     Route: 042
     Dates: start: 20170509, end: 20170621

REACTIONS (5)
  - Hepatic failure [None]
  - Pneumonia [None]
  - Aspergillus infection [None]
  - Hernia [None]
  - Small intestinal obstruction [None]

NARRATIVE: CASE EVENT DATE: 20170814
